FAERS Safety Report 16297708 (Version 5)
Quarter: 2020Q2

REPORT INFORMATION
  Report Type: Report from Study
  Country: CN (occurrence: CN)
  Receive Date: 20190510
  Receipt Date: 20200602
  Transmission Date: 20200713
  Serious: Yes (Death, Life-Threatening, Hospitalization)
  Sender: FDA-Public Use
  Company Number: CN-ROCHE-2273386

PATIENT
  Age: 56 Year
  Sex: Female
  Weight: 46.5 kg

DRUGS (122)
  1. TRASTUZUMAB EMTANSINE [Suspect]
     Active Substance: ADO-TRASTUZUMAB EMTANSINE
     Indication: BREAST CANCER METASTATIC
     Dosage: DATE OF MOST RECENT DOSE OF TRASTUZUMAB EMTANSINE (171 MG) PRIOR TO SAE ONSET: 15/FEB/2019
     Route: 042
     Dates: start: 20180827
  2. POTASSIUM CHLORIDE. [Concomitant]
     Active Substance: POTASSIUM CHLORIDE
     Route: 065
     Dates: start: 20190408, end: 20190409
  3. POTASSIUM CHLORIDE. [Concomitant]
     Active Substance: POTASSIUM CHLORIDE
     Route: 065
     Dates: start: 20190411
  4. DEXAMETHASONE SODIUM PHOSPHATE. [Concomitant]
     Active Substance: DEXAMETHASONE SODIUM PHOSPHATE
     Route: 065
     Dates: start: 20190403, end: 20190403
  5. DEXAMETHASONE SODIUM PHOSPHATE. [Concomitant]
     Active Substance: DEXAMETHASONE SODIUM PHOSPHATE
     Route: 065
     Dates: start: 20190427, end: 20190427
  6. CEFTRIAXONE. [Concomitant]
     Active Substance: CEFTRIAXONE
     Indication: INFECTION PROPHYLAXIS
     Route: 065
     Dates: start: 20190318, end: 20190318
  7. LACTULOSE. [Concomitant]
     Active Substance: LACTULOSE
     Route: 048
     Dates: start: 20190412
  8. MEROPENEM. [Concomitant]
     Active Substance: MEROPENEM
     Route: 065
     Dates: start: 20190327, end: 20190403
  9. FERROUS SULFATE. [Concomitant]
     Active Substance: FERROUS SULFATE
     Route: 065
     Dates: start: 20190328, end: 20190329
  10. SODIUM LACTATE. [Concomitant]
     Active Substance: SODIUM LACTATE
     Route: 065
     Dates: start: 20190422, end: 20190422
  11. PROMETHAZINE HYDROCHLORIDE. [Concomitant]
     Active Substance: PROMETHAZINE HYDROCHLORIDE
     Route: 065
     Dates: start: 20190329, end: 20190329
  12. PROMETHAZINE HYDROCHLORIDE. [Concomitant]
     Active Substance: PROMETHAZINE HYDROCHLORIDE
     Route: 065
     Dates: start: 20190422, end: 20190422
  13. PLASMA [Concomitant]
     Active Substance: HUMAN PLASMA
     Indication: ANAEMIA
     Route: 065
     Dates: start: 20190329, end: 20190329
  14. TRANEXAMIC ACID. [Concomitant]
     Active Substance: TRANEXAMIC ACID
     Indication: LOWER GASTROINTESTINAL HAEMORRHAGE
     Route: 065
     Dates: start: 20190330, end: 20190330
  15. SODIUM BICARBONATE. [Concomitant]
     Active Substance: SODIUM BICARBONATE
     Route: 065
     Dates: start: 20190401, end: 20190401
  16. SODIUM GLYCEROPHOSPHATE [Concomitant]
     Active Substance: SODIUM GLYCEROPHOSPHATE
     Route: 065
     Dates: start: 20190429, end: 20190429
  17. MAGNESIUM SULFATE. [Concomitant]
     Active Substance: MAGNESIUM SULFATE
     Indication: HYPOMAGNESAEMIA
     Route: 065
     Dates: start: 20190418, end: 20190425
  18. INDOMETACIN [Concomitant]
     Active Substance: INDOMETHACIN
     Route: 065
     Dates: start: 20190419, end: 20190419
  19. INSULIN HUMAN [Concomitant]
     Active Substance: INSULIN HUMAN
     Route: 065
     Dates: start: 20190327, end: 20190327
  20. POTASSIUM CHLORIDE. [Concomitant]
     Active Substance: POTASSIUM CHLORIDE
     Dosage: SUSTAINED RELEASE
     Route: 065
     Dates: start: 20190313
  21. POTASSIUM CHLORIDE. [Concomitant]
     Active Substance: POTASSIUM CHLORIDE
     Route: 065
     Dates: start: 20190329, end: 20190404
  22. SODIUM CHLORIDE. [Concomitant]
     Active Substance: SODIUM CHLORIDE
     Route: 065
     Dates: start: 20190404, end: 20190404
  23. OMEPRAZOLE. [Concomitant]
     Active Substance: OMEPRAZOLE
     Route: 065
     Dates: start: 20190302, end: 20190502
  24. HUMAN ALBUMIN [Concomitant]
     Active Substance: ALBUMIN HUMAN
     Route: 065
     Dates: start: 20190418, end: 20190502
  25. HUMAN SERUM ALBUMIN [Concomitant]
     Active Substance: ALBUMIN HUMAN
     Indication: HYPOALBUMINAEMIA
     Route: 065
     Dates: start: 20190318, end: 20190318
  26. DEXAMETHASONE SODIUM PHOSPHATE. [Concomitant]
     Active Substance: DEXAMETHASONE SODIUM PHOSPHATE
     Route: 065
     Dates: start: 20190428, end: 20190428
  27. HYDROXYETHYL STARCH [Concomitant]
     Active Substance: HETASTARCH
     Route: 065
     Dates: start: 20190318, end: 20190318
  28. CEFTRIAXONE SODIUM. [Concomitant]
     Active Substance: CEFTRIAXONE SODIUM
     Route: 065
     Dates: start: 20190428, end: 20190429
  29. HUMAN FIBRINOGEN [Concomitant]
     Active Substance: FIBRINOGEN HUMAN
     Route: 065
     Dates: start: 20190403, end: 20190403
  30. TESTOSTERONE UNDECANOATE. [Concomitant]
     Active Substance: TESTOSTERONE UNDECANOATE
     Route: 065
     Dates: start: 20190425, end: 20190502
  31. IPRATROPIUM BROMIDE. [Concomitant]
     Active Substance: IPRATROPIUM BROMIDE
     Indication: DYSPNOEA
     Route: 065
     Dates: start: 20190429, end: 20190502
  32. NOREPINEPHRINE BITARTRATE. [Concomitant]
     Active Substance: NOREPINEPHRINE BITARTRATE
     Route: 065
     Dates: start: 20190502, end: 20190502
  33. POTASSIUM CHLORIDE. [Concomitant]
     Active Substance: POTASSIUM CHLORIDE
     Route: 065
     Dates: start: 20190320, end: 20190320
  34. POTASSIUM CHLORIDE. [Concomitant]
     Active Substance: POTASSIUM CHLORIDE
     Route: 065
     Dates: start: 20190428, end: 20190501
  35. HUMAN ALBUMIN [Concomitant]
     Active Substance: ALBUMIN HUMAN
     Route: 065
     Dates: start: 20190402, end: 20190410
  36. OCTREOTIDE ACETATE. [Concomitant]
     Active Substance: OCTREOTIDE ACETATE
     Route: 065
     Dates: start: 20190329, end: 20190408
  37. SODIUM LACTATE. [Concomitant]
     Active Substance: SODIUM LACTATE
     Route: 065
     Dates: start: 20190327, end: 20190327
  38. PROMETHAZINE HYDROCHLORIDE. [Concomitant]
     Active Substance: PROMETHAZINE HYDROCHLORIDE
     Route: 065
     Dates: start: 20190331, end: 20190331
  39. PROMETHAZINE HYDROCHLORIDE. [Concomitant]
     Active Substance: PROMETHAZINE HYDROCHLORIDE
     Route: 065
     Dates: start: 20190427, end: 20190427
  40. EPINEPHRINE. [Concomitant]
     Active Substance: EPINEPHRINE
     Route: 065
     Dates: start: 20190502, end: 20190502
  41. HUMAN IMMUNOGLOBULIN [Concomitant]
     Route: 065
     Dates: start: 20190304, end: 20190409
  42. HUMAN IMMUNOGLOBULIN [Concomitant]
     Route: 042
     Dates: start: 20190329, end: 20190403
  43. GLUCOSE [Concomitant]
     Active Substance: DEXTROSE
     Route: 065
     Dates: start: 20190408, end: 20190408
  44. POTASSIUM CHLORIDE. [Concomitant]
     Active Substance: POTASSIUM CHLORIDE
     Indication: HYPOKALAEMIA
     Route: 065
     Dates: start: 20190305, end: 20190309
  45. POTASSIUM CHLORIDE. [Concomitant]
     Active Substance: POTASSIUM CHLORIDE
     Dosage: SUSTAINED RELEASE
     Route: 065
     Dates: start: 20190306, end: 20190310
  46. POTASSIUM CHLORIDE. [Concomitant]
     Active Substance: POTASSIUM CHLORIDE
     Route: 065
     Dates: start: 20190408, end: 20190408
  47. SODIUM CHLORIDE. [Concomitant]
     Active Substance: SODIUM CHLORIDE
     Route: 065
     Dates: start: 20190330, end: 20190330
  48. SODIUM CHLORIDE. [Concomitant]
     Active Substance: SODIUM CHLORIDE
     Dosage: RECEIVED ON 12/MAR/2019
     Route: 065
     Dates: start: 20190430, end: 20190502
  49. PHENERGAN [Concomitant]
     Active Substance: PROMETHAZINE HYDROCHLORIDE
     Route: 065
     Dates: start: 20190317, end: 20190317
  50. HYDROXYETHYL STARCH [Concomitant]
     Active Substance: HETASTARCH
     Route: 065
     Dates: start: 20190327, end: 20190327
  51. PIPERACILLIN SODIUM;TAZOBACTAM SODIUM [Concomitant]
     Active Substance: PIPERACILLIN SODIUM\TAZOBACTAM SODIUM
     Indication: INFECTION PROPHYLAXIS
     Route: 065
     Dates: start: 20190318, end: 20190321
  52. MEROPENEM. [Concomitant]
     Active Substance: MEROPENEM
     Route: 065
     Dates: start: 20190430, end: 20190502
  53. FOLIC ACID. [Concomitant]
     Active Substance: FOLIC ACID
     Route: 065
     Dates: start: 20190328, end: 20190502
  54. PANTOPRAZOLE SODIUM. [Concomitant]
     Active Substance: PANTOPRAZOLE SODIUM
     Indication: LOWER GASTROINTESTINAL HAEMORRHAGE
     Route: 065
     Dates: start: 20190329, end: 20190403
  55. PROMETHAZINE HYDROCHLORIDE. [Concomitant]
     Active Substance: PROMETHAZINE HYDROCHLORIDE
     Route: 065
     Dates: start: 20190329, end: 20190329
  56. CARBAZOCHROME SODIUM SULFONATE [Concomitant]
     Active Substance: CARBAZOCHROME SODIUM SULFONATE
     Indication: LOWER GASTROINTESTINAL HAEMORRHAGE
     Route: 065
     Dates: start: 20190329, end: 20190329
  57. BIOSYNTHETIC HUMAN INSULIN [Concomitant]
     Active Substance: INSULIN HUMAN
     Route: 065
     Dates: start: 20190408, end: 20190408
  58. LEVOFLOXACIN. [Concomitant]
     Active Substance: LEVOFLOXACIN
     Route: 065
     Dates: start: 20190430, end: 20190502
  59. CASPOFUNGIN ACETATE. [Concomitant]
     Active Substance: CASPOFUNGIN ACETATE
     Route: 065
     Dates: start: 20190430, end: 20190502
  60. MECOBALAMIN [Concomitant]
     Active Substance: METHYLCOBALAMIN
     Route: 065
     Dates: start: 20190328, end: 20190502
  61. HUMAN IMMUNOGLOBULIN [Concomitant]
     Route: 065
     Dates: start: 20190319, end: 20190324
  62. GLUCOSE [Concomitant]
     Active Substance: DEXTROSE
     Route: 065
     Dates: start: 20190329, end: 20190329
  63. GLUCOSE [Concomitant]
     Active Substance: DEXTROSE
     Route: 065
     Dates: start: 20190502, end: 20190502
  64. INSULIN HUMAN [Concomitant]
     Active Substance: INSULIN HUMAN
     Route: 065
     Dates: start: 20190305, end: 20190309
  65. PROMETHAZINE [Concomitant]
     Active Substance: PROMETHAZINE HYDROCHLORIDE
     Route: 065
     Dates: start: 20190303, end: 20190303
  66. PROMETHAZINE [Concomitant]
     Active Substance: PROMETHAZINE HYDROCHLORIDE
     Route: 065
     Dates: start: 20190315, end: 20190315
  67. HUMAN ALBUMIN [Concomitant]
     Active Substance: ALBUMIN HUMAN
     Route: 065
     Dates: start: 20190401, end: 20190401
  68. DEXAMETHASONE SODIUM PHOSPHATE. [Concomitant]
     Active Substance: DEXAMETHASONE SODIUM PHOSPHATE
     Route: 065
     Dates: start: 20190411, end: 20190411
  69. HYDROXYETHYL STARCH [Concomitant]
     Active Substance: HETASTARCH
     Route: 065
     Dates: start: 20190430, end: 20190430
  70. HYDROXYETHYL STARCH [Concomitant]
     Active Substance: HETASTARCH
     Route: 065
     Dates: start: 20190502, end: 20190502
  71. PROMETHAZINE HYDROCHLORIDE. [Concomitant]
     Active Substance: PROMETHAZINE HYDROCHLORIDE
     Route: 065
     Dates: start: 20190403, end: 20190403
  72. SODIUM BICARBONATE. [Concomitant]
     Active Substance: SODIUM BICARBONATE
     Route: 065
     Dates: start: 20190502, end: 20190502
  73. IMIPENEM AND CILASTATIN SODIUM [Concomitant]
     Active Substance: CILASTATIN SODIUM\IMIPENEM
     Route: 065
     Dates: start: 20190430, end: 20190430
  74. DIPROPHYLLINE [Concomitant]
     Active Substance: DYPHYLLINE
     Indication: DYSPNOEA
     Route: 065
     Dates: start: 20190430, end: 20190430
  75. DEXMEDETOMIDINE HYDROCHLORIDE. [Concomitant]
     Active Substance: DEXMEDETOMIDINE HYDROCHLORIDE
     Route: 065
     Dates: start: 20190501, end: 20190501
  76. METHYLPREDNISOLONE SODIUM SUCCINATE. [Concomitant]
     Active Substance: METHYLPREDNISOLONE SODIUM SUCCINATE
     Route: 065
     Dates: start: 20190430, end: 20190430
  77. INSULIN HUMAN [Concomitant]
     Active Substance: INSULIN HUMAN
     Route: 065
     Dates: start: 20190328, end: 20190404
  78. POTASSIUM CHLORIDE. [Concomitant]
     Active Substance: POTASSIUM CHLORIDE
     Route: 065
     Dates: start: 20190312, end: 20190315
  79. OMEPRAZOLE. [Concomitant]
     Active Substance: OMEPRAZOLE
     Route: 065
     Dates: start: 20190304, end: 20190304
  80. EPHEDRINE. [Concomitant]
     Active Substance: EPHEDRINE
     Route: 065
     Dates: start: 20190304, end: 20190307
  81. HUMAN ALBUMIN [Concomitant]
     Active Substance: ALBUMIN HUMAN
     Indication: HYPOPROTEINAEMIA
     Route: 065
     Dates: start: 20190325, end: 20190325
  82. DEXAMETHASONE SODIUM PHOSPHATE. [Concomitant]
     Active Substance: DEXAMETHASONE SODIUM PHOSPHATE
     Route: 065
     Dates: start: 20190315, end: 20190315
  83. LACTULOSE. [Concomitant]
     Active Substance: LACTULOSE
     Indication: CONSTIPATION
     Route: 048
     Dates: start: 20190319
  84. IRON SUCROSE [Concomitant]
     Active Substance: IRON SUCROSE
     Route: 065
     Dates: start: 20190328
  85. AMBROXOL HYDROCHLORIDE [Concomitant]
     Active Substance: AMBROXOL HYDROCHLORIDE
     Route: 065
     Dates: start: 20190329, end: 20190412
  86. CALCIUM CHLORIDE. [Concomitant]
     Active Substance: CALCIUM CHLORIDE
     Indication: HYPOCALCAEMIA
     Route: 065
     Dates: start: 20190328, end: 20190328
  87. PROMETHAZINE HYDROCHLORIDE. [Concomitant]
     Active Substance: PROMETHAZINE HYDROCHLORIDE
     Route: 065
     Dates: start: 20190411, end: 20190411
  88. URSODEOXYCHOLIC ACID [Concomitant]
     Active Substance: URSODIOL
     Indication: BLOOD BILIRUBIN INCREASED
  89. METHYLPREDNISOLONE SODIUM SUCCINATE. [Concomitant]
     Active Substance: METHYLPREDNISOLONE SODIUM SUCCINATE
     Route: 065
     Dates: start: 20190430, end: 20190430
  90. METHYLPREDNISOLONE. [Concomitant]
     Active Substance: METHYLPREDNISOLONE
     Route: 065
     Dates: start: 20190305
  91. GLUCOSE [Concomitant]
     Active Substance: DEXTROSE
     Route: 065
     Dates: start: 20190329, end: 20190404
  92. GLUCOSE [Concomitant]
     Active Substance: DEXTROSE
     Route: 065
     Dates: start: 20190327, end: 20190327
  93. POTASSIUM CHLORIDE. [Concomitant]
     Active Substance: POTASSIUM CHLORIDE
     Route: 065
     Dates: start: 20190314, end: 20190314
  94. POTASSIUM CHLORIDE. [Concomitant]
     Active Substance: POTASSIUM CHLORIDE
     Route: 065
     Dates: start: 20190327, end: 20190327
  95. SODIUM CHLORIDE. [Concomitant]
     Active Substance: SODIUM CHLORIDE
     Indication: HYPONATRAEMIA
     Route: 065
     Dates: start: 20190313, end: 20190313
  96. PROMETHAZINE [Concomitant]
     Active Substance: PROMETHAZINE HYDROCHLORIDE
     Route: 065
     Dates: start: 20190325, end: 20190325
  97. HUMAN ALBUMIN [Concomitant]
     Active Substance: ALBUMIN HUMAN
     Indication: HYPOALBUMINAEMIA
     Route: 065
     Dates: start: 20190312, end: 20190312
  98. HUMAN ALBUMIN [Concomitant]
     Active Substance: ALBUMIN HUMAN
     Route: 065
     Dates: start: 20190327, end: 20190327
  99. HUMAN SERUM ALBUMIN [Concomitant]
     Active Substance: ALBUMIN HUMAN
     Route: 065
     Dates: start: 20190314, end: 20190314
  100. FUROSEMIDE. [Concomitant]
     Active Substance: FUROSEMIDE
     Indication: POLYURIA
     Route: 065
     Dates: start: 20190318, end: 20190318
  101. PIPERACILLIN SODIUM;TAZOBACTAM SODIUM [Concomitant]
     Active Substance: PIPERACILLIN SODIUM\TAZOBACTAM SODIUM
     Route: 065
     Dates: start: 20190429, end: 20190430
  102. CALCIUM CHLORIDE. [Concomitant]
     Active Substance: CALCIUM CHLORIDE
     Route: 065
     Dates: start: 20190401, end: 20190401
  103. CEFTRIAXONE SODIUM. [Concomitant]
     Active Substance: CEFTRIAXONE SODIUM
     Route: 065
     Dates: start: 20190403, end: 20190409
  104. CEFUROXIME SODIUM. [Concomitant]
     Active Substance: CEFUROXIME SODIUM
     Route: 065
     Dates: start: 20190418, end: 20190418
  105. MECOBALAMIN [Concomitant]
     Active Substance: METHYLCOBALAMIN
     Indication: NEUROTOXICITY
     Route: 065
     Dates: start: 20180716, end: 20190226
  106. POLYENE PHOSPHATIDYLCHOLINE [Concomitant]
     Active Substance: PHOSPHOLIPID
     Route: 065
     Dates: start: 20181213, end: 20190226
  107. GLUCOSE [Concomitant]
     Active Substance: DEXTROSE
     Indication: LOWER GASTROINTESTINAL HAEMORRHAGE
     Route: 065
     Dates: start: 20190305, end: 20190309
  108. POTASSIUM CHLORIDE. [Concomitant]
     Active Substance: POTASSIUM CHLORIDE
     Route: 065
     Dates: start: 20190404
  109. METOPROLOL. [Concomitant]
     Active Substance: METOPROLOL
     Route: 065
     Dates: start: 20190306, end: 20190323
  110. SODIUM CHLORIDE. [Concomitant]
     Active Substance: SODIUM CHLORIDE
     Indication: LOWER GASTROINTESTINAL HAEMORRHAGE
     Route: 065
     Dates: start: 20190325, end: 20190325
  111. SODIUM CHLORIDE. [Concomitant]
     Active Substance: SODIUM CHLORIDE
     Route: 065
     Dates: start: 20190401, end: 20190401
  112. PROMETHAZINE [Concomitant]
     Active Substance: PROMETHAZINE HYDROCHLORIDE
     Route: 065
     Dates: start: 20190321, end: 20190321
  113. DEXAMETHASONE SODIUM PHOSPHATE. [Concomitant]
     Active Substance: DEXAMETHASONE SODIUM PHOSPHATE
     Route: 065
     Dates: start: 20190325, end: 20190325
  114. DEXAMETHASONE SODIUM PHOSPHATE. [Concomitant]
     Active Substance: DEXAMETHASONE SODIUM PHOSPHATE
     Route: 065
     Dates: start: 20190331, end: 20190331
  115. INDOMETHACIN [INDOMETACIN] [Concomitant]
     Active Substance: INDOMETHACIN
     Indication: PYREXIA
     Route: 065
  116. PANTOPRAZOLE SODIUM. [Concomitant]
     Active Substance: PANTOPRAZOLE SODIUM
     Route: 065
     Dates: start: 20190416, end: 20190502
  117. SODIUM LACTATE. [Concomitant]
     Active Substance: SODIUM LACTATE
     Route: 065
     Dates: start: 20190329, end: 20190329
  118. SODIUM LACTATE. [Concomitant]
     Active Substance: SODIUM LACTATE
     Route: 065
     Dates: start: 20190404, end: 20190404
  119. PROMETHAZINE HYDROCHLORIDE. [Concomitant]
     Active Substance: PROMETHAZINE HYDROCHLORIDE
     Route: 065
     Dates: start: 20190327, end: 20190327
  120. PROMETHAZINE HYDROCHLORIDE. [Concomitant]
     Active Substance: PROMETHAZINE HYDROCHLORIDE
     Route: 065
     Dates: start: 20190327, end: 20190327
  121. SODIUM GLYCEROPHOSPHATE [Concomitant]
     Active Substance: SODIUM GLYCEROPHOSPHATE
     Indication: HYPOPHOSPHATAEMIA
     Route: 065
     Dates: start: 20190418, end: 20190425
  122. BUDESONIDE. [Concomitant]
     Active Substance: BUDESONIDE
     Indication: DYSPNOEA
     Route: 065
     Dates: start: 20190429, end: 20190502

REACTIONS (2)
  - Pneumonia [Fatal]
  - Thrombocytopenia [Not Recovered/Not Resolved]

NARRATIVE: CASE EVENT DATE: 20190124
